FAERS Safety Report 10397576 (Version 1)
Quarter: 2014Q3

REPORT INFORMATION
  Report Type: Spontaneous
  Country: US (occurrence: US)
  Receive Date: 20140820
  Receipt Date: 20140820
  Transmission Date: 20150326
  Serious: Yes (Other)
  Sender: FDA-Public Use
  Company Number: US-AMGEN-USASP2014062943

PATIENT
  Age: 40 Year
  Sex: Female

DRUGS (1)
  1. ENBREL [Suspect]
     Active Substance: ETANERCEPT
     Indication: RHEUMATOID ARTHRITIS
     Dosage: 50 MG, QWK
     Route: 065
     Dates: start: 20140520

REACTIONS (11)
  - Meniscus injury [Recovered/Resolved]
  - Joint hyperextension [Recovered/Resolved]
  - Arthralgia [Recovered/Resolved]
  - Gastroenteritis viral [Not Recovered/Not Resolved]
  - Injection site rash [Recovered/Resolved]
  - Joint lock [Recovered/Resolved]
  - Injection site erythema [Recovered/Resolved]
  - Abdominal discomfort [Not Recovered/Not Resolved]
  - Vomiting [Not Recovered/Not Resolved]
  - Diarrhoea [Not Recovered/Not Resolved]
  - Joint crepitation [Recovered/Resolved]

NARRATIVE: CASE EVENT DATE: 2014
